FAERS Safety Report 5970104-0 (Version None)
Quarter: 2008Q4

REPORT INFORMATION
  Report Type: 
  Country: None (occurrence: None)
  Receive Date: 20081126
  Receipt Date: 20081114
  Transmission Date: 20090506
  Serious: Yes (Death, Life-Threatening, Hospitalization)
  Sender: FDA-Public Use
  Company Number: GB-PFIZER INC-2008097854

PATIENT
  Sex: Male

DRUGS (3)
  1. ECALTA [Suspect]
     Indication: CANDIDIASIS
     Route: 042
  2. AMBISOME [Concomitant]
  3. DRUG, UNSPECIFIED [Concomitant]

REACTIONS (1)
  - DEATH [None]
